FAERS Safety Report 6572133-5 (Version None)
Quarter: 2010Q1

REPORT INFORMATION
  Report Type: 
  Country: None (occurrence: None)
  Receive Date: 20100205
  Receipt Date: 20100201
  Transmission Date: 20100710
  Serious: Yes (Death, Life-Threatening, Other)
  Sender: FDA-Public Use
  Company Number: GB-CELGENEUS-167-21880-10011366

PATIENT
  Sex: Male

DRUGS (3)
  1. REVLIMID [Suspect]
     Indication: MYELOMA RECURRENCE
     Route: 048
     Dates: start: 20090928, end: 20091230
  2. BONEFOS [Concomitant]
     Route: 065
     Dates: start: 20050922, end: 20091230
  3. DEXAMETHASONE [Concomitant]
     Route: 065
     Dates: start: 20090928, end: 20091230

REACTIONS (2)
  - SEPSIS [None]
  - URINARY TRACT INFECTION [None]
